FAERS Safety Report 9567800 (Version 1)
Quarter: 2013Q3

REPORT INFORMATION
  Report Type: Spontaneous
  Country: US (occurrence: US)
  Receive Date: 20130930
  Receipt Date: 20130930
  Transmission Date: 20140515
  Serious: No
  Sender: FDA-Public Use
  Company Number: US-AMGEN-USASP2013028058

PATIENT
  Age: 49 Year
  Sex: Female

DRUGS (2)
  1. ENBREL [Suspect]
     Indication: RHEUMATOID ARTHRITIS
     Dosage: 50 MG, QWK
     Dates: start: 20130412
  2. METHOTREXATE [Concomitant]
     Dosage: 25 MG, QWK, 10 TABLETS FOR 9 MONTHS TO 1 YEAR
     Dates: start: 2012

REACTIONS (1)
  - Diarrhoea [Not Recovered/Not Resolved]
